FAERS Safety Report 9363880 (Version 1)
Quarter: 2013Q2

REPORT INFORMATION
  Report Type: Report from Study
  Country: TW (occurrence: TW)
  Receive Date: 20130624
  Receipt Date: 20130624
  Transmission Date: 20140414
  Serious: Yes (Other)
  Sender: FDA-Public Use
  Company Number: TW-ROCHE-1237536

PATIENT
  Sex: 0

DRUGS (5)
  1. BEVACIZUMAB [Suspect]
     Indication: COLORECTAL CANCER METASTATIC
     Dosage: FOR 120 MINUTES ON DAY 1
     Route: 042
  2. IRINOTECAN [Suspect]
     Indication: COLORECTAL CANCER METASTATIC
     Dosage: 120 MINUTES INFUSION
     Route: 042
  3. LEUCOVORIN [Suspect]
     Indication: COLORECTAL CANCER METASTATIC
     Dosage: OVER 2 HOURS
     Route: 042
  4. FLUOROURACIL [Suspect]
     Indication: COLORECTAL CANCER METASTATIC
     Dosage: BOLUS INFUSION
     Route: 042
  5. FLUOROURACIL [Suspect]
     Dosage: OVER 46 HOUR PERIOD
     Route: 042

REACTIONS (12)
  - Asthenia [Unknown]
  - Diarrhoea [Unknown]
  - Nausea [Unknown]
  - Vomiting [Unknown]
  - Mucosal inflammation [Unknown]
  - Haematotoxicity [Unknown]
  - Proteinuria [Unknown]
  - Constipation [Unknown]
  - Hypertension [Unknown]
  - Gastrointestinal haemorrhage [Unknown]
  - Hepatotoxicity [Unknown]
  - Hypersensitivity [Unknown]
